FAERS Safety Report 7917361-9 (Version None)
Quarter: 2011Q4

REPORT INFORMATION
  Report Type: 
  Country: None (occurrence: None)
  Receive Date: 20111116
  Receipt Date: 20111109
  Transmission Date: 20120403
  Serious: Yes (Death)
  Sender: FDA-Public Use
  Company Number: PHHY2011EC099138

PATIENT
  Age: 87 Year
  Sex: Female

DRUGS (1)
  1. DIOVAN HCT [Suspect]
     Indication: HYPERTENSION
     Dosage: 1 DF (160/12.5 MG), QD
     Dates: start: 20090713

REACTIONS (2)
  - RESPIRATORY ARREST [None]
  - GENERAL PHYSICAL CONDITION ABNORMAL [None]
